FAERS Safety Report 7753550-4 (Version None)
Quarter: 2011Q3

REPORT INFORMATION
  Report Type: 
  Country: None (occurrence: None)
  Receive Date: 20110915
  Receipt Date: 20110908
  Transmission Date: 20111222
  Serious: Yes (Other)
  Sender: FDA-Public Use
  Company Number: GB-CEPHALON-2011004511

PATIENT
  Sex: Female

DRUGS (11)
  1. AMITRIPTYLINE HCL [Concomitant]
  2. ALLOPURINOL [Concomitant]
  3. TREANDA [Suspect]
     Indication: LYMPHOMA
     Route: 042
     Dates: start: 20110802
  4. CETIRIZINE HCL [Concomitant]
  5. PREDNISOLONE [Concomitant]
  6. THYROXIN [Concomitant]
  7. RISEDRONIC ACID [Concomitant]
  8. ACYCLOVIR [Concomitant]
  9. DAPSONE [Concomitant]
  10. RITUXIMAB [Concomitant]
  11. PROMETHAZINE [Concomitant]

REACTIONS (1)
  - PROGRESSIVE MULTIFOCAL LEUKOENCEPHALOPATHY [None]
